FAERS Safety Report 13213601 (Version 1)
Quarter: 2017Q1

REPORT INFORMATION
  Report Type: Spontaneous
  Country: US (occurrence: US)
  Receive Date: 20170210
  Receipt Date: 20170210
  Transmission Date: 20170428
  Serious: No
  Sender: FDA-Public Use
  Company Number: US-PERRIGO-16US018314

PATIENT
  Sex: Female

DRUGS (2)
  1. TRETINOIN. [Suspect]
     Active Substance: TRETINOIN
     Indication: SKIN WRINKLING
     Dosage: SMALL AMOUNT, QHS
     Route: 061
     Dates: start: 2011
  2. TRETINOIN. [Suspect]
     Active Substance: TRETINOIN
     Dosage: SMALL AMOUNT, QHS
     Route: 061
     Dates: start: 20160715, end: 20160719

REACTIONS (1)
  - Drug ineffective for unapproved indication [Unknown]

NARRATIVE: CASE EVENT DATE: 2011
